FAERS Safety Report 23254162 (Version 2)
Quarter: 2023Q4

REPORT INFORMATION
  Report Type: Spontaneous
  Country: PT (occurrence: PT)
  Receive Date: 20231202
  Receipt Date: 20231229
  Transmission Date: 20240110
  Serious: Yes (Hospitalization)
  Sender: FDA-Public Use
  Company Number: PT-MACLEODS PHARMACEUTICALS US LTD-MAC2023044541

PATIENT

DRUGS (3)
  1. VENLAFAXINE HYDROCHLORIDE [Suspect]
     Active Substance: VENLAFAXINE HYDROCHLORIDE
     Indication: Depression
     Dosage: 150 MILLIGRAM (SLOW-RELEASE FORMULATION), EFEXOR XR 150 MG, PILLS)
     Route: 048
     Dates: start: 201003
  2. CENTELLA ASIATICA WHOLE [Concomitant]
     Active Substance: CENTELLA ASIATICA WHOLE
     Indication: Weight decreased
     Dosage: UNK
     Route: 065
  3. FUCUS VESICULOSUS [Concomitant]
     Active Substance: FUCUS VESICULOSUS
     Indication: Weight decreased
     Dosage: UNK
     Route: 065

REACTIONS (5)
  - Dilated cardiomyopathy [Recovered/Resolved]
  - Cardiac failure [Recovered/Resolved]
  - Cardiotoxicity [Recovered/Resolved]
  - Pulmonary toxicity [Recovered/Resolved]
  - Interstitial lung disease [Recovered/Resolved]

NARRATIVE: CASE EVENT DATE: 20100601
